FAERS Safety Report 8682797 (Version 2)
Quarter: 2013Q1

REPORT INFORMATION
  Report Type: Spontaneous
  Country: JP (occurrence: None)
  Receive Date: 20120706
  Receipt Date: 20130322
  Transmission Date: 20140127
  Serious: Yes (Hospitalization)
  Sender: FDA-Public Use
  Company Number: 2012-002355

PATIENT
  Age: 80 Year
  Sex: Female

DRUGS (1)
  1. ACTONEL (RISEDRONATE SODIUM) TABLET [Suspect]
     Indication: OSTEOPOROSIS
     Dosage: ORAL
     Route: 048
     Dates: start: 201102

REACTIONS (6)
  - Atypical femur fracture [None]
  - Bone pain [None]
  - Arthralgia [None]
  - Low turnover osteopathy [None]
  - Bone formation decreased [None]
  - Bone resorption test abnormal [None]
